FAERS Safety Report 5839322-6 (Version None)
Quarter: 2008Q3

REPORT INFORMATION
  Report Type: 
  Country: None (occurrence: None)
  Receive Date: 20080808
  Receipt Date: 20080730
  Transmission Date: 20090109
  Serious: Yes (Hospitalization)
  Sender: FDA-Public Use
  Company Number: GB-PFIZER INC-2008064140

PATIENT
  Age: 49 Year
  Sex: Female

DRUGS (4)
  1. SERTRALINE [Suspect]
  2. DEXTROPROPOXYPHENE [Suspect]
  3. CO-PROXAMOL [Suspect]
  4. RISPERIDONE [Suspect]

REACTIONS (2)
  - HEPATIC ENCEPHALOPATHY [None]
  - OVERDOSE [None]
